FAERS Safety Report 5167399-2 (Version None)
Quarter: 2006Q4

REPORT INFORMATION
  Report Type: 
  Country: None (occurrence: None)
  Receive Date: 20061130
  Receipt Date: 20061117
  Transmission Date: 20070319
  Serious: Yes (Disabling, Other)
  Sender: FDA-Public Use
  Company Number: 2006143620

PATIENT
  Age: 45 Year
  Sex: Male
  Weight: 95 kg

DRUGS (4)
  1. CELEBREX [Suspect]
     Indication: EPIDIDYMITIS
     Dosage: 400 MG (200 MG,2 IN 1 D), ORAL
     Route: 048
     Dates: start: 20061104, end: 20061108
  2. CIPROFLOXACIN HCL [Suspect]
     Indication: EPIDIDYMITIS
     Dosage: 1000 MG (500 MG,2 IN 1 D), ORAL
     Route: 048
     Dates: start: 20061104, end: 20061108
  3. DICLOFENAC SODIUM [Concomitant]
  4. OFLOXACIN [Concomitant]

REACTIONS (3)
  - ARTHRALGIA [None]
  - MUSCLE ATROPHY [None]
  - MYALGIA [None]
